FAERS Safety Report 6661406-3 (Version None)
Quarter: 2010Q1

REPORT INFORMATION
  Report Type: 
  Country: None (occurrence: None)
  Receive Date: 20100331
  Receipt Date: 20100328
  Transmission Date: 20100710
  Serious: Yes (Death, Hospitalization)
  Sender: FDA-Public Use
  Company Number: PHHY2010IL07777

PATIENT
  Sex: Male

DRUGS (2)
  1. LAMISIL [Suspect]
     Route: 048
  2. TERBINAFINE [Suspect]
     Route: 048

REACTIONS (4)
  - HEPATIC FAILURE [None]
  - LIVER FUNCTION TEST ABNORMAL [None]
  - RENAL FAILURE [None]
  - RENAL FUNCTION TEST ABNORMAL [None]
